FAERS Safety Report 8826729 (Version 1)
Quarter: 2012Q4

REPORT INFORMATION
  Report Type: 
  Country: US (occurrence: US)
  Receive Date: 20121005
  Receipt Date: 20121005
  Transmission Date: 20130627
  Serious: Yes (Other)
  Sender: FDA-Public Use
  Company Number: CHPA2012US020504

PATIENT
  Age: 48 Year
  Sex: Female

DRUGS (1)
  1. ALPHA-KERI MOISTURE RICH OIL [Suspect]
     Indication: THERAPEUTIC SKIN CARE TOPICAL
     Dosage: Unk, ONCE DAILY ON HANDS
     Route: 061
     Dates: start: 1964

REACTIONS (3)
  - Diabetes mellitus [Not Recovered/Not Resolved]
  - Thyroid disorder [Not Recovered/Not Resolved]
  - Eczema [Not Recovered/Not Resolved]
